FAERS Safety Report 23879916 (Version 1)
Quarter: 2024Q2

REPORT INFORMATION
  Report Type: Spontaneous
  Country: US (occurrence: US)
  Receive Date: 20240521
  Receipt Date: 20240521
  Transmission Date: 20240716
  Serious: No
  Sender: FDA-Public Use
  Company Number: US-HORIZON THERAPEUTICS-HZN-2024-004426

PATIENT

DRUGS (1)
  1. UPLIZNA [Suspect]
     Active Substance: INEBILIZUMAB-CDON
     Indication: Neuromyelitis optica spectrum disorder
     Dosage: FIRST DOSE
     Route: 065
     Dates: start: 2024

REACTIONS (1)
  - JC polyomavirus test positive [Unknown]

NARRATIVE: CASE EVENT DATE: 20240101
